FAERS Safety Report 20589816 (Version 1)
Quarter: 2022Q1

REPORT INFORMATION
  Report Type: Spontaneous
  Country: US (occurrence: None)
  Receive Date: 20220314
  Receipt Date: 20220314
  Transmission Date: 20220423
  Serious: No
  Sender: FDA-Public Use
  Company Number: 2022A084679

PATIENT

DRUGS (1)
  1. SYMBICORT [Suspect]
     Active Substance: BUDESONIDE\FORMOTEROL FUMARATE DIHYDRATE
     Indication: Chronic obstructive pulmonary disease
     Dosage: 160/4.5MCG TWO TIMES A DAY
     Route: 055

REACTIONS (12)
  - Symptom recurrence [Unknown]
  - Rhinorrhoea [Unknown]
  - Choking [Unknown]
  - Gastric disorder [Unknown]
  - Vomiting [Unknown]
  - Memory impairment [Unknown]
  - Productive cough [Unknown]
  - Hypotension [Unknown]
  - Cough [Unknown]
  - Oropharyngeal discomfort [Unknown]
  - Headache [Unknown]
  - Device malfunction [Unknown]
